FAERS Safety Report 8793246 (Version 1)
Quarter: 2012Q4

REPORT INFORMATION
  Report Type: 
  Country: CO (occurrence: CO)
  Receive Date: 20120918
  Receipt Date: 20120918
  Transmission Date: 20130627
  Serious: Yes (Other)
  Sender: FDA-Public Use
  Company Number: CO-UCBSA-065494

PATIENT
  Sex: Female

DRUGS (2)
  1. NUBRENZA [Suspect]
     Indication: PARKINSON^S DISEASE
     Route: 062
     Dates: start: 20120509, end: 20120620
  2. NONE [Concomitant]

REACTIONS (2)
  - Dyskinesia [Unknown]
  - Dysarthria [Unknown]
